FAERS Safety Report 9467134 (Version 3)
Quarter: 2013Q3

REPORT INFORMATION
  Report Type: Spontaneous
  Country: JP (occurrence: JP)
  Receive Date: 20130820
  Receipt Date: 20130927
  Transmission Date: 20140515
  Serious: Yes (Other)
  Sender: FDA-Public Use
  Company Number: JP-B.I. PHARMACEUTICALS,INC./RIDGEFIELD-2013-BI-25739NB

PATIENT
  Age: 9 Decade
  Sex: Female

DRUGS (1)
  1. PRAZAXA [Suspect]
     Dosage: 150 MG
     Route: 048

REACTIONS (2)
  - Embolic cerebral infarction [Unknown]
  - Drug effect incomplete [Unknown]
